FAERS Safety Report 14111066 (Version 8)
Quarter: 2018Q1

REPORT INFORMATION
  Report Type: Report from Study
  Country: KR (occurrence: KR)
  Receive Date: 20171020
  Receipt Date: 20180109
  Transmission Date: 20180508
  Serious: Yes (Hospitalization)
  Sender: FDA-Public Use
  Company Number: KR-SA-2017SA200584

PATIENT
  Age: 41 Year
  Sex: Female
  Weight: 87.9 kg

DRUGS (25)
  1. VENTOLIN [Suspect]
     Active Substance: ALBUTEROL SULFATE
     Indication: ASTHMA
     Dosage: DOSE:8 PUFF(S)
     Route: 055
     Dates: start: 20110725
  2. DERMOVATE [Concomitant]
     Active Substance: CLOBETASOL
     Route: 061
     Dates: start: 20170814
  3. DERMOFIX [Concomitant]
     Route: 061
     Dates: start: 20170914
  4. UREA. [Concomitant]
     Active Substance: UREA
     Indication: PROPHYLAXIS
     Route: 061
     Dates: start: 20170914
  5. RHINOVENT [Concomitant]
     Dosage: DOSE:0.3 MILLIGRAM(S)/MILLILITRE
     Route: 045
     Dates: start: 20170316
  6. HEBRON F [Concomitant]
     Route: 048
     Dates: start: 20170817, end: 20170927
  7. SAR231893 [Suspect]
     Active Substance: DUPILUMAB
     Indication: ASTHMA
     Route: 058
     Dates: end: 20170720
  8. ALBIS [Concomitant]
     Active Substance: BISMUTH SUBCITRATE\RANITIDINE HYDROCHLORIDE\SUCRALFATE
     Route: 048
     Dates: start: 20170413
  9. ROXOL [Concomitant]
     Route: 048
     Dates: start: 20170804
  10. SERETIDE [Suspect]
     Active Substance: FLUTICASONE PROPIONATE\SALMETEROL XINAFOATE
     Indication: ASTHMA
     Route: 055
     Dates: start: 20160119, end: 20170803
  11. MONTELUKAST [Concomitant]
     Active Substance: MONTELUKAST SODIUM
     Route: 048
     Dates: start: 20170804
  12. ALLEGRA [Concomitant]
     Active Substance: FEXOFENADINE HYDROCHLORIDE
     Route: 048
     Dates: start: 20170707, end: 20170927
  13. LEVOPRIDE [Concomitant]
     Indication: PROPHYLAXIS
     Route: 048
     Dates: start: 20160913
  14. AVAMYS [Concomitant]
     Active Substance: FLUTICASONE FUROATE
     Dosage: AVAMYS NASAL SPRAY
     Route: 045
     Dates: start: 20170804
  15. RHINATHIOL [Concomitant]
     Active Substance: CARBOCYSTEINE
     Route: 048
     Dates: start: 20170804
  16. AZEPTIN [Concomitant]
     Active Substance: AZELASTINE HYDROCHLORIDE
     Route: 048
     Dates: start: 20170914
  17. SAR231893 [Suspect]
     Active Substance: DUPILUMAB
     Indication: ASTHMA
     Route: 058
     Dates: start: 20160804, end: 20160804
  18. MONTELUKAST [Concomitant]
     Active Substance: MONTELUKAST SODIUM
     Route: 048
     Dates: start: 20160922, end: 20170803
  19. CODEINE [Concomitant]
     Active Substance: CODEINE
     Route: 048
     Dates: start: 20170804, end: 20170913
  20. ALTARGO [Concomitant]
     Active Substance: RETAPAMULIN
     Indication: PROPHYLAXIS
     Route: 061
     Dates: start: 20170814
  21. ELOCOM [Concomitant]
     Active Substance: MOMETASONE FUROATE
     Route: 061
     Dates: start: 20170831, end: 20170913
  22. SAR231893 [Suspect]
     Active Substance: DUPILUMAB
     Indication: ASTHMA
     Route: 058
     Dates: start: 20170804, end: 20170804
  23. SAR231893 [Suspect]
     Active Substance: DUPILUMAB
     Indication: ASTHMA
     Route: 058
     Dates: start: 20170817, end: 20170914
  24. SERETIDE [Suspect]
     Active Substance: FLUTICASONE PROPIONATE\SALMETEROL XINAFOATE
     Indication: ASTHMA
     Route: 055
     Dates: start: 20170804
  25. COLCHIN [Concomitant]
     Route: 048
     Dates: start: 20170831, end: 20171012

REACTIONS (1)
  - Erythema nodosum [Recovered/Resolved]

NARRATIVE: CASE EVENT DATE: 20170922
